FAERS Safety Report 18579231 (Version 2)
Quarter: 2020Q4

REPORT INFORMATION
  Report Type: Spontaneous
  Country: CZ (occurrence: CZ)
  Receive Date: 20201204
  Receipt Date: 20201218
  Transmission Date: 20210114
  Serious: Yes (Other)
  Sender: FDA-Public Use
  Company Number: CZ-BAYER-2020-259014

PATIENT
  Age: 46 Year
  Sex: Male
  Weight: 115.8 kg

DRUGS (14)
  1. CARVEDILOL. [Concomitant]
     Active Substance: CARVEDILOL
     Dosage: UNK
  2. ANTITHROMBIN ALFA [Concomitant]
     Active Substance: ANTITHROMBIN ALFA
     Dosage: 1500 IU, ONCE (PREPARATION FOR SURGERY)
  3. KOGENATE [Suspect]
     Active Substance: ANTIHEMOPHILIC FACTOR, HUMAN RECOMBINANT
     Indication: FACTOR VIII DEFICIENCY
     Dosage: PROGRESSIVELY REDUCED DOSES UNTIL DISCONTINUATION
     Dates: end: 20190107
  4. IRON [Concomitant]
     Active Substance: IRON
     Dosage: UNK
     Route: 048
  5. LINAGLIPTIN [Concomitant]
     Active Substance: LINAGLIPTIN
     Dosage: UNK
  6. PLATELETS [Concomitant]
     Active Substance: HUMAN PLATELET, ALLOGENIC
     Dosage: PREPARATION FOR SURGERY
  7. KOGENATE [Suspect]
     Active Substance: ANTIHEMOPHILIC FACTOR, HUMAN RECOMBINANT
     Indication: FACTOR VIII DEFICIENCY
     Dosage: 17 IU/KG, BIW
     Dates: start: 2012
  8. OCTAPLAS [Concomitant]
     Active Substance: HUMAN PLASMA
     Dosage: 600 ML, ONCE (PREPARATION FOR SURGERY)
  9. RITONAVIR. [Concomitant]
     Active Substance: RITONAVIR
     Indication: HEPATITIS C
     Dosage: UNK
     Dates: start: 2016
  10. DASABUVIR [Concomitant]
     Active Substance: DASABUVIR
     Indication: HEPATITIS C
     Dosage: UNK
     Dates: start: 2016
  11. KOGENATE [Suspect]
     Active Substance: ANTIHEMOPHILIC FACTOR, HUMAN RECOMBINANT
     Indication: FACTOR VIII DEFICIENCY
     Dosage: 6000 IU, ONCE (FOR PHARMACOKINETIC STUDY)
     Dates: start: 201810, end: 201810
  12. KOGENATE [Suspect]
     Active Substance: ANTIHEMOPHILIC FACTOR, HUMAN RECOMBINANT
     Indication: FACTOR VIII DEFICIENCY
     Dosage: 7000 IU, ONCE (PREPARATION FOR SURGERY)
     Dates: start: 20190105, end: 20190105
  13. OMBITASVIR [Concomitant]
     Active Substance: OMBITASVIR
     Indication: HEPATITIS C
     Dosage: UNK
     Dates: start: 2016
  14. PAROXETINE. [Concomitant]
     Active Substance: PAROXETINE
     Dosage: UNK

REACTIONS (1)
  - Haemarthrosis [None]
